FAERS Safety Report 5703734-1 (Version None)
Quarter: 2008Q2

REPORT INFORMATION
  Report Type: 
  Country: None (occurrence: None)
  Receive Date: 20080413
  Receipt Date: 20080404
  Transmission Date: 20081010
  Serious: Yes (Hospitalization, Other)
  Sender: FDA-Public Use
  Company Number: PHRM2008FR01241

PATIENT
  Age: 68 Year
  Sex: Male

DRUGS (16)
  1. NUTRITION SUPPLEMENTS [Concomitant]
     Indication: MALNUTRITION
     Dosage: 500 ML/DAY
     Dates: start: 20070801
  2. LESCOL [Suspect]
     Indication: HYPERCHOLESTEROLAEMIA
     Dosage: 40 MG, BID
     Route: 048
  3. CYMEVAN [Suspect]
     Indication: CYTOMEGALOVIRUS VIRAEMIA
     Dosage: 200 MG, QD
     Route: 048
  4. BACTRIM [Suspect]
     Indication: PNEUMOCYSTIS JIROVECI PNEUMONIA
     Dosage: 1.5 TABLETS PER WEEK
     Route: 048
     Dates: start: 20070715
  5. CORDARONE [Suspect]
     Indication: ARRHYTHMIA
     Dosage: 200 MG, QD
     Route: 048
     Dates: start: 20070730
  6. TEGELINE [Suspect]
     Indication: SELECTIVE IGG SUBCLASS DEFICIENCY
     Dosage: 1 DF, QD
     Dates: start: 20070915, end: 20070918
  7. HUMALOG [Concomitant]
     Indication: DIABETES MELLITUS
     Dosage: 1000 IU, PRN
     Route: 058
     Dates: start: 20070801
  8. CALCIPARINE [Concomitant]
     Indication: THROMBOSIS PROPHYLAXIS
     Dosage: 0.2 ML, TID
     Route: 058
     Dates: start: 20070715
  9. LANTUS [Concomitant]
     Indication: DIABETES MELLITUS
     Dosage: 20 IU/DAY
     Dates: start: 20070801
  10. INIPOMP [Concomitant]
     Dosage: 20 MG, QD
     Route: 048
     Dates: start: 20070730
  11. NEORECORMON [Concomitant]
     Indication: ANAEMIA
     Dosage: 1000 IU, QW
     Route: 058
  12. PEGASYS [Concomitant]
     Indication: HEPATITIS C POSITIVE
     Dosage: 90 UG/WEEK
     Route: 058
     Dates: start: 20060101
  13. REBETOL [Concomitant]
     Indication: HEPATITIS C POSITIVE
     Dosage: 200 MG, 5QD
     Route: 048
     Dates: start: 20060101
  14. PROGRAF [Concomitant]
     Indication: HEPATITIS C POSITIVE
     Dosage: 2 MG, BID
     Route: 048
     Dates: start: 20060101, end: 20070831
  15. RAPAMUNE [Concomitant]
     Indication: LIVER TRANSPLANT
     Dosage: 2 MG, QD
     Route: 048
     Dates: start: 20070901
  16. CORTANCYL [Concomitant]
     Indication: LIVER TRANSPLANT
     Dosage: 10 MG/DAY
     Route: 048
     Dates: start: 20070831

REACTIONS (15)
  - ACIDOSIS [None]
  - BLOOD CREATININE INCREASED [None]
  - BLOOD UREA INCREASED [None]
  - HYPERTENSION [None]
  - HYPONATRAEMIA [None]
  - KIDNEY SMALL [None]
  - MECHANICAL VENTILATION [None]
  - NEUROMUSCULAR BLOCKING THERAPY [None]
  - PNEUMOCYSTIS JIROVECI PNEUMONIA [None]
  - PNEUMONIA KLEBSIELLA [None]
  - PNEUMONIA STAPHYLOCOCCAL [None]
  - PYREXIA [None]
  - RENAL FAILURE ACUTE [None]
  - SELECTIVE IGG SUBCLASS DEFICIENCY [None]
  - TRACHEOSTOMY [None]
